FAERS Safety Report 8257048-9 (Version None)
Quarter: 2012Q2

REPORT INFORMATION
  Report Type: 
  Country: None (occurrence: None)
  Receive Date: 20120403
  Receipt Date: 20120327
  Transmission Date: 20120825
  Serious: Yes (Life-Threatening)
  Sender: FDA-Public Use
  Company Number: JP-GLAXOSMITHKLINE-B0782272A

PATIENT
  Sex: Female

DRUGS (5)
  1. LAMICTAL [Suspect]
     Dosage: 50MG PER DAY
     Route: 048
     Dates: start: 20120130, end: 20120213
  2. LITHIUM CARBONATE [Concomitant]
     Indication: BIPOLAR DISORDER
     Dosage: 400MG PER DAY
     Route: 048
     Dates: start: 20111014, end: 20120213
  3. DEPAS [Concomitant]
     Dosage: 1MG PER DAY
     Route: 048
     Dates: start: 20111117, end: 20120213
  4. ALPRAZOLAM [Concomitant]
     Dosage: 1.2MG PER DAY
     Route: 048
     Dates: start: 20111014, end: 20120213
  5. LAMICTAL [Suspect]
     Indication: BIPOLAR DISORDER
     Dosage: 25MG PER DAY
     Route: 048
     Dates: start: 20120116, end: 20120129

REACTIONS (1)
  - DRUG RASH WITH EOSINOPHILIA AND SYSTEMIC SYMPTOMS [None]
